FAERS Safety Report 9698274 (Version 3)
Quarter: 2014Q1

REPORT INFORMATION
  Report Type: Spontaneous
  Country: US (occurrence: US)
  Receive Date: 20131120
  Receipt Date: 20140202
  Transmission Date: 20141002
  Serious: No
  Sender: FDA-Public Use
  Company Number: US-009507513-1311USA007359

PATIENT
  Sex: Male
  Weight: 70.3 kg

DRUGS (1)
  1. MIRALAX [Suspect]
     Indication: FAECES HARD
     Dosage: 12.75 G, QD
     Route: 048
     Dates: start: 201101

REACTIONS (2)
  - Incorrect drug administration duration [Unknown]
  - Product physical consistency issue [Unknown]
